FAERS Safety Report 13048205 (Version 1)
Quarter: 2016Q4

REPORT INFORMATION
  Report Type: Spontaneous
  Country: US (occurrence: US)
  Receive Date: 20161220
  Receipt Date: 20161220
  Transmission Date: 20170207
  Serious: Yes (Hospitalization)
  Sender: FDA-Public Use
  Company Number: US-BEH-2016076104

PATIENT
  Age: 10 Year
  Sex: Male

DRUGS (1)
  1. RIASTAP [Suspect]
     Active Substance: FIBRINOGEN HUMAN
     Indication: CONGENITAL COAGULOPATHY
     Dosage: 3000 MG, PRN
     Route: 042
     Dates: start: 20160919

REACTIONS (4)
  - Haematochezia [Unknown]
  - Pruritus [Unknown]
  - Bacterial infection [Unknown]
  - Throat irritation [Unknown]

NARRATIVE: CASE EVENT DATE: 20161118
